FAERS Safety Report 7502488-6 (Version None)
Quarter: 2011Q2

REPORT INFORMATION
  Report Type: 
  Country: None (occurrence: None)
  Receive Date: 20110517
  Receipt Date: 20110510
  Transmission Date: 20111010
  Serious: Yes (Hospitalization)
  Sender: FDA-Public Use
  Company Number: 1000020837

PATIENT
  Age: 67 Year
  Sex: Male

DRUGS (10)
  1. STATIN [Concomitant]
  2. ANGIOTENSIN COVERTING ENXYME INHIBITOR (ANGIOTENSIN) [Concomitant]
  3. LEVOTHROID (LEVOTHYROXINE SODIUM) [Suspect]
  4. SAXAGLIPTIN (SAXAGLIPTIN) [Suspect]
     Indication: TYPE 2 DIABETES MELLITUS
     Dates: start: 20100729
  5. ASPIRIN [Concomitant]
  6. BETA-CLOCKER [Concomitant]
  7. DIURETICS [Concomitant]
  8. ANTI-COAGULANTS [Concomitant]
  9. PLACEBO [Suspect]
     Indication: TYPE 2 DIABETES MELLITUS
     Dates: start: 20100729
  10. GLIPIZIDE [Suspect]
     Indication: DIABETES MELLITUS
     Dosage: 10 MG

REACTIONS (3)
  - ATRIAL FIBRILLATION [None]
  - BLOOD GLUCOSE INCREASED [None]
  - ELECTROCARDIOGRAM ST-T CHANGE [None]
